FAERS Safety Report 13699632 (Version 3)
Quarter: 2017Q4

REPORT INFORMATION
  Report Type: Spontaneous
  Country: US (occurrence: US)
  Receive Date: 20170629
  Receipt Date: 20171206
  Transmission Date: 20180320
  Serious: No
  Sender: FDA-Public Use
  Company Number: US-TEVA-746281ACC

PATIENT
  Sex: Female

DRUGS (21)
  1. OMEGA 3-6-9 [Concomitant]
     Active Substance: FISH OIL
     Dates: start: 20160310
  2. ZANAFLEX [Concomitant]
     Active Substance: TIZANIDINE HYDROCHLORIDE
     Dates: start: 20161220
  3. MAGNESIUM [Concomitant]
     Active Substance: MAGNESIUM
     Dates: start: 20160310
  4. IRON [Concomitant]
     Active Substance: IRON
     Dates: start: 20160826
  5. FISH OIL [Concomitant]
     Active Substance: FISH OIL
     Dates: start: 20160826
  6. ASPIRIN. [Concomitant]
     Active Substance: ASPIRIN
     Dates: start: 20160826
  7. BACLOFEN. [Concomitant]
     Active Substance: BACLOFEN
     Dates: start: 20160310
  8. VALIUM [Concomitant]
     Active Substance: DIAZEPAM
     Dates: start: 20160310
  9. VITAMIN D [Concomitant]
     Active Substance: CHOLECALCIFEROL
     Dates: start: 20160310
  10. METHENAMINE [Concomitant]
     Active Substance: METHENAMINE
     Dates: start: 20171004
  11. ZANTAC [Concomitant]
     Active Substance: RANITIDINE HYDROCHLORIDE
     Dates: start: 20160310, end: 20160826
  12. POTASSIUM [Concomitant]
     Active Substance: POTASSIUM
     Dates: start: 20160310
  13. LEVOTHYROXIN [Concomitant]
     Active Substance: LEVOTHYROXINE
     Dates: start: 20160826
  14. COPAXONE [Suspect]
     Active Substance: GLATIRAMER ACETATE
     Indication: MULTIPLE SCLEROSIS
     Dosage: PEN
     Route: 058
     Dates: start: 20160319
  15. VITAMIN C [Concomitant]
     Active Substance: ASCORBIC ACID
     Dates: start: 20160310
  16. GINGER. [Concomitant]
     Active Substance: GINGER
     Dates: start: 20160826
  17. GARLIC. [Concomitant]
     Active Substance: GARLIC
     Dates: start: 20160826
  18. PROBIOTIC COLON [Concomitant]
     Dates: start: 20160310
  19. CALCIUM/D CHW 500-400 [Concomitant]
  20. TRAMADOL. [Concomitant]
     Active Substance: TRAMADOL
     Dates: start: 20160310
  21. CALCIUM [Concomitant]
     Active Substance: CALCIUM

REACTIONS (11)
  - Bladder disorder [Not Recovered/Not Resolved]
  - Injection site reaction [Not Recovered/Not Resolved]
  - Muscle spasticity [Not Recovered/Not Resolved]
  - Depression [Not Recovered/Not Resolved]
  - Injection site urticaria [Not Recovered/Not Resolved]
  - Burning sensation [Not Recovered/Not Resolved]
  - Cystitis [Not Recovered/Not Resolved]
  - Myalgia [Not Recovered/Not Resolved]
  - Motor dysfunction [Not Recovered/Not Resolved]
  - Neuralgia [Not Recovered/Not Resolved]
  - Fatigue [Not Recovered/Not Resolved]
